FAERS Safety Report 9054427 (Version 1)
Quarter: 2013Q1

REPORT INFORMATION
  Report Type: Spontaneous
  Country: US (occurrence: US)
  Receive Date: 20130208
  Receipt Date: 20130208
  Transmission Date: 20140127
  Serious: No
  Sender: FDA-Public Use
  Company Number: US-GLAXOSMITHKLINE-A0966732A

PATIENT
  Age: 49 Year
  Sex: Female

DRUGS (2)
  1. PAXIL [Suspect]
     Indication: PANIC ATTACK
     Dosage: 10MG PER DAY
     Route: 048
     Dates: start: 20120218
  2. NO CONCURRENT MEDICATION [Concomitant]

REACTIONS (3)
  - Dizziness [Recovered/Resolved]
  - Panic attack [Unknown]
  - Drug ineffective [Unknown]
